FAERS Safety Report 18309910 (Version 1)
Quarter: 2020Q3

REPORT INFORMATION
  Report Type: Spontaneous
  Country: US (occurrence: US)
  Receive Date: 20200925
  Receipt Date: 20200925
  Transmission Date: 20201103
  Serious: Yes (Hospitalization, Other)
  Sender: FDA-Public Use
  Company Number: US-SUN PHARMACEUTICAL INDUSTRIES LTD-2019R1-223233

PATIENT
  Age: 53 Year
  Sex: Female

DRUGS (1)
  1. LITHIUM. [Suspect]
     Active Substance: LITHIUM
     Indication: SCHIZOAFFECTIVE DISORDER
     Dosage: 1200 MILLIGRAM
     Route: 065

REACTIONS (5)
  - Hyperparathyroidism [Recovering/Resolving]
  - Hypercalcaemia [Recovering/Resolving]
  - Diabetes insipidus [Unknown]
  - Blood creatinine abnormal [Recovering/Resolving]
  - Toxicity to various agents [Unknown]
